FAERS Safety Report 19840106 (Version 1)
Quarter: 2021Q3

REPORT INFORMATION
  Report Type: Spontaneous
  Country: US (occurrence: US)
  Receive Date: 20210916
  Receipt Date: 20210916
  Transmission Date: 20211014
  Serious: Yes (Hospitalization)
  Sender: FDA-Public Use
  Company Number: None

PATIENT
  Age: 65 Year
  Sex: Female
  Weight: 43.5 kg

DRUGS (1)
  1. PACLITAXEL 50 ML VIAL [Suspect]
     Active Substance: PACLITAXEL
     Indication: BREAST CANCER
     Dosage: ?          OTHER FREQUENCY:WEEKLY;?
     Route: 042
     Dates: start: 20210818, end: 20210915

REACTIONS (3)
  - Hypersensitivity [None]
  - Head discomfort [None]
  - Infusion related reaction [None]

NARRATIVE: CASE EVENT DATE: 20210915
